FAERS Safety Report 8478896-6 (Version None)
Quarter: 2012Q2

REPORT INFORMATION
  Report Type: 
  Country: None (occurrence: None)
  Receive Date: 20120629
  Receipt Date: 20120619
  Transmission Date: 20120825
  Serious: Yes (Hospitalization)
  Sender: FDA-Public Use
  Company Number: SE-PFIZER INC-2012155574

PATIENT
  Age: 53 Year
  Sex: Female

DRUGS (2)
  1. ACE INHIBITOR NOS [Suspect]
     Indication: PRODUCT USED FOR UNKNOWN INDICATION
     Route: 065
  2. IBUPROFEN [Suspect]
     Indication: BACK DISORDER
     Dosage: UNK
     Route: 065
     Dates: end: 20120113

REACTIONS (1)
  - HYPERKALAEMIA [None]
